FAERS Safety Report 5622433-8 (Version None)
Quarter: 2008Q1

REPORT INFORMATION
  Report Type: 
  Country: None (occurrence: None)
  Receive Date: 20080114
  Receipt Date: 20070821
  Transmission Date: 20080703
  Serious: Yes (Other)
  Sender: FDA-Public Use
  Company Number: A03200705233

PATIENT
  Age: 49 Year
  Sex: Female

DRUGS (2)
  1. PLAVIX [Suspect]
     Indication: PERCUTANEOUS CORONARY INTERVENTION
     Dosage: ORAL
     Route: 048
     Dates: start: 20070621, end: 20070621
  2. ANGIOMAX [Suspect]
     Indication: PERCUTANEOUS CORONARY INTERVENTION
     Dosage: 0.75 MG/KG BOLUS FOLLOWED BY AN INFUSION OF 1.75 MG/KG/HR - INTRAVENOUS NOS
     Route: 042
     Dates: start: 20070621

REACTIONS (2)
  - CHEST PAIN [None]
  - STENT OCCLUSION [None]
